FAERS Safety Report 25724594 (Version 1)
Quarter: 2025Q3

REPORT INFORMATION
  Report Type: Spontaneous
  Country: US (occurrence: US)
  Receive Date: 20250826
  Receipt Date: 20250826
  Transmission Date: 20251021
  Serious: Yes (Other)
  Sender: COOPERSURGICAL
  Company Number: US-COOPERSURGICAL, INC.-2025CPS006100

PATIENT
  Sex: Female
  Weight: 102.04 kg

DRUGS (1)
  1. PARAGARD T 380A [Suspect]
     Active Substance: COPPER
     Indication: Contraception
     Route: 015
     Dates: start: 20171101

REACTIONS (23)
  - Reproductive complication associated with device [Not Recovered/Not Resolved]
  - Cervical dysplasia [Not Recovered/Not Resolved]
  - Device breakage [Not Recovered/Not Resolved]
  - Foreign body in reproductive tract [Not Recovered/Not Resolved]
  - Complication of device removal [Not Recovered/Not Resolved]
  - Embedded device [Not Recovered/Not Resolved]
  - Sexual dysfunction [Unknown]
  - Device issue [Not Recovered/Not Resolved]
  - Device material issue [Recovered/Resolved]
  - Herpes simplex [Unknown]
  - Anxiety [Not Recovered/Not Resolved]
  - Depression [Not Recovered/Not Resolved]
  - Vulvovaginal dryness [Unknown]
  - Vulvovaginal pain [Unknown]
  - Device expulsion [Not Recovered/Not Resolved]
  - Dysmenorrhoea [Not Recovered/Not Resolved]
  - Unevaluable event [Unknown]
  - Dyspareunia [Not Recovered/Not Resolved]
  - Bacterial vaginosis [Unknown]
  - Vaginal infection [Unknown]
  - Pain [Unknown]
  - Vaginal discharge [Unknown]
  - Discomfort [Unknown]

NARRATIVE: CASE EVENT DATE: 20210101
